FAERS Safety Report 6930345-2 (Version None)
Quarter: 2010Q3

REPORT INFORMATION
  Report Type: 
  Country: None (occurrence: None)
  Receive Date: 20100818
  Receipt Date: 20100809
  Transmission Date: 20110219
  Serious: Yes (Hospitalization, Other)
  Sender: FDA-Public Use
  Company Number: SG-ROCHE-720005

PATIENT
  Age: 52 Year
  Sex: Male

DRUGS (8)
  1. RIBAVIRIN [Suspect]
     Indication: HEPATITIS C
     Route: 065
  2. RIBAVIRIN [Suspect]
     Dosage: DOSE REDUCED.
     Route: 065
  3. EPOGEN [Suspect]
     Indication: ANAEMIA
     Route: 065
  4. EPOGEN [Suspect]
     Dosage: DOSE INCREASED.
     Route: 065
  5. PEG-INTRON [Suspect]
     Indication: HEPATITIS C
     Route: 065
  6. SULPHASALAZINE [Concomitant]
     Indication: RHEUMATOID ARTHRITIS
  7. METHYLPREDNISOLONE [Concomitant]
     Dosage: FOR 3 DAYS.
     Route: 042
  8. PREDNISOLONE [Concomitant]
     Dosage: TAPERED GRADUALLY AND DISCONTINUED 6 MONTHS LATER.
     Route: 048

REACTIONS (5)
  - ACUTE MYOCARDIAL INFARCTION [None]
  - ANAEMIA [None]
  - DRUG INEFFECTIVE [None]
  - HAEMOPTYSIS [None]
  - PULMONARY RENAL SYNDROME [None]
